FAERS Safety Report 4719537-0 (Version None)
Quarter: 2005Q3

REPORT INFORMATION
  Report Type: 
  Country: None (occurrence: None)
  Receive Date: 20050719
  Receipt Date: 20050705
  Transmission Date: 20060218
  Serious: Yes (Hospitalization, Other)
  Sender: FDA-Public Use
  Company Number: 136134

PATIENT
  Age: 62 Year
  Sex: Female
  Weight: 61.2356 kg

DRUGS (4)
  1. AVONEX [Suspect]
     Indication: MULTIPLE SCLEROSIS
     Dosage: 30 UG QW IM
     Route: 030
     Dates: start: 20000120, end: 20030801
  2. AVONEX [Suspect]
     Dosage: 30 UG QW IM
     Route: 030
     Dates: start: 20030801
  3. PREMARIN [Concomitant]
  4. LEVOTHROID [Concomitant]

REACTIONS (4)
  - ATRIAL FIBRILLATION [None]
  - BREAST CANCER [None]
  - CARDIAC DISORDER [None]
  - INFLUENZA LIKE ILLNESS [None]
